FAERS Safety Report 6263367-8 (Version None)
Quarter: 2009Q3

REPORT INFORMATION
  Report Type: 
  Country: None (occurrence: None)
  Receive Date: 20090710
  Receipt Date: 20080808
  Transmission Date: 20100115
  Serious: Yes (Disabling, Other)
  Sender: FDA-Public Use
  Company Number: A0741989A

PATIENT
  Age: 53 Year
  Sex: Female

DRUGS (2)
  1. FLOVENT [Suspect]
     Indication: ASTHMA
     Dosage: 440MCG TWICE PER DAY
     Route: 055
     Dates: start: 20080101
  2. PROVENTIL-HFA [Concomitant]

REACTIONS (1)
  - DRUG INEFFECTIVE [None]
